FAERS Safety Report 11112665 (Version 1)
Quarter: 2015Q2

REPORT INFORMATION
  Report Type: Spontaneous
  Country: US (occurrence: US)
  Receive Date: 20150514
  Receipt Date: 20150514
  Transmission Date: 20150821
  Serious: No
  Sender: FDA-Public Use
  Company Number: US-BIOGENIDEC-2015BI063222

PATIENT
  Age: 61 Year
  Sex: Female

DRUGS (7)
  1. PRAVASTATIN SODIUM. [Concomitant]
     Active Substance: PRAVASTATIN SODIUM
  2. AMITRIPLYINE HCL [Concomitant]
  3. LEVOTHYROXINE SODIUM. [Concomitant]
     Active Substance: LEVOTHYROXINE SODIUM
  4. CLONZAEPAM [Concomitant]
  5. TECFIDERA [Suspect]
     Active Substance: DIMETHYL FUMARATE
     Indication: MULTIPLE SCLEROSIS
     Route: 048
     Dates: start: 20150202
  6. VITAMIN D [Concomitant]
     Active Substance: CHOLECALCIFEROL
  7. AMPYRA [Concomitant]
     Active Substance: DALFAMPRIDINE

REACTIONS (1)
  - Memory impairment [Unknown]

NARRATIVE: CASE EVENT DATE: 2015
